FAERS Safety Report 15964588 (Version 2)
Quarter: 2019Q2

REPORT INFORMATION
  Report Type: Spontaneous
  Country: FR (occurrence: FR)
  Receive Date: 20190215
  Receipt Date: 20190501
  Transmission Date: 20190711
  Serious: Yes (Other)
  Sender: FDA-Public Use
  Company Number: FR-SUN PHARMACEUTICAL INDUSTRIES LTD-2019RR-199107

PATIENT
  Sex: Female
  Weight: 102 kg

DRUGS (16)
  1. SUFENTANIL [Suspect]
     Active Substance: SUFENTANIL
     Indication: TUMOUR EXCISION
     Dosage: UNK
     Route: 065
     Dates: start: 20180924, end: 20180924
  2. KETOPROFEN. [Suspect]
     Active Substance: KETOPROFEN
     Indication: TUMOUR EXCISION
     Dosage: UNK
     Route: 042
     Dates: start: 20180924, end: 20180924
  3. ENANTONE LP [Suspect]
     Active Substance: LEUPROLIDE ACETATE
     Indication: BREAST CANCER METASTATIC
     Dosage: UNK
     Route: 065
     Dates: start: 201707, end: 201809
  4. HERCEPTIN [Suspect]
     Active Substance: TRASTUZUMAB
     Indication: BREAST CANCER METASTATIC
     Dosage: 600 MILLIGRAM
     Route: 058
     Dates: start: 201707, end: 20181106
  5. LETROZOLE. [Suspect]
     Active Substance: LETROZOLE
     Indication: BREAST CANCER METASTATIC
     Dosage: 1 DOSAGE FORM, DAILY
     Route: 048
     Dates: start: 201801, end: 20181106
  6. MORPHINE [Suspect]
     Active Substance: MORPHINE
     Indication: TUMOUR EXCISION
     Dosage: UNK
     Route: 042
     Dates: start: 20180924, end: 20180924
  7. PROPOFOL. [Suspect]
     Active Substance: PROPOFOL
     Indication: GENERAL ANAESTHESIA
     Dosage: UNK
     Route: 042
     Dates: start: 20180924, end: 20180924
  8. ROPIVACAINE (CHLORHYDRATE DE) MONOHYDRATE [Suspect]
     Active Substance: ROPIVACAINE HYDROCHLORIDE
     Indication: LOCAL ANAESTHESIA
     Dosage: UNK
     Route: 065
     Dates: start: 20180924, end: 20180924
  9. LIDOCAINE. [Suspect]
     Active Substance: LIDOCAINE
     Indication: TUMOUR EXCISION
     Dosage: UNK
     Route: 065
     Dates: start: 20180924, end: 20180924
  10. LYTOS [Suspect]
     Active Substance: CLODRONATE DISODIUM
     Indication: METASTASES TO BONE
     Dosage: 2 DOSAGE FORM, DAILY
     Route: 048
  11. CISATRACURIUM. [Suspect]
     Active Substance: CISATRACURIUM
     Indication: TUMOUR EXCISION
     Dosage: UNK
     Route: 042
     Dates: start: 20180924, end: 20180924
  12. DROPERIDOL. [Suspect]
     Active Substance: DROPERIDOL
     Indication: TUMOUR EXCISION
     Dosage: UNK
     Route: 042
     Dates: start: 20180924, end: 20180924
  13. PARACETAMOL [Suspect]
     Active Substance: ACETAMINOPHEN
     Indication: TUMOUR EXCISION
     Dosage: UNK
     Route: 042
     Dates: start: 20180924, end: 20180924
  14. PERJETA [Suspect]
     Active Substance: PERTUZUMAB
     Indication: BREAST CANCER METASTATIC
     Dosage: 420 MILLIGRAM
     Route: 042
     Dates: start: 201707, end: 20181106
  15. DEXAMETHASONE. [Suspect]
     Active Substance: DEXAMETHASONE
     Indication: TUMOUR EXCISION
     Dosage: UNK
     Route: 065
     Dates: start: 20180924, end: 20180924
  16. NEFOPAM (CHLORHYDRATE DE) [Suspect]
     Active Substance: NEFOPAM HYDROCHLORIDE
     Indication: TUMOUR EXCISION
     Dosage: UNK
     Route: 042
     Dates: start: 20180924, end: 20180924

REACTIONS (2)
  - Maternal exposure during pregnancy [Unknown]
  - Oligohydramnios [Not Recovered/Not Resolved]

NARRATIVE: CASE EVENT DATE: 201811
